FAERS Safety Report 9445726 (Version 1)
Quarter: 2013Q3

REPORT INFORMATION
  Report Type: Spontaneous
  Country: GB (occurrence: GB)
  Receive Date: 20130807
  Receipt Date: 20130807
  Transmission Date: 20140515
  Serious: Yes (Other)
  Sender: FDA-Public Use
  Company Number: GB-BRISTOL-MYERS SQUIBB COMPANY-19165430

PATIENT
  Age: 72 Year
  Sex: Female
  Weight: 74 kg

DRUGS (11)
  1. METFORMIN HCL [Suspect]
     Indication: TYPE 2 DIABETES MELLITUS
     Dates: end: 20130525
  2. ASPIRIN [Concomitant]
  3. ATENOLOL [Concomitant]
  4. ATORVASTATIN [Concomitant]
  5. CANDESARTAN [Concomitant]
  6. CO-PROXAMOL [Concomitant]
  7. DILTIAZEM HCL [Concomitant]
  8. GLICLAZIDE [Concomitant]
  9. LEVOTHYROXINE [Concomitant]
     Dosage: 25MG 1IN1DAY
  10. ISOSORBIDE MONONITRATE [Concomitant]
  11. PANTOPRAZOLE [Concomitant]

REACTIONS (1)
  - Faecal incontinence [Recovered/Resolved]
